FAERS Safety Report 24439041 (Version 1)
Quarter: 2024Q4

REPORT INFORMATION
  Report Type: Spontaneous
  Country: US (occurrence: US)
  Receive Date: 20241015
  Receipt Date: 20241015
  Transmission Date: 20250114
  Serious: Yes (Hospitalization, Other)
  Sender: AMGEN
  Company Number: US-AMGEN-USASP2024200932

PATIENT
  Age: 70 Year
  Sex: Male

DRUGS (4)
  1. EVOLOCUMAB [Suspect]
     Active Substance: EVOLOCUMAB
     Indication: Hyperlipidaemia
     Dosage: 140 MILLIGRAM, Q2WK
     Route: 058
  2. EZETIMIBE [Concomitant]
     Active Substance: EZETIMIBE
     Dosage: 10 MILLIGRAM
  3. ROSUVASTATIN [Concomitant]
     Active Substance: ROSUVASTATIN
     Dosage: 40 MILLIGRAM
  4. ASPIRIN [Concomitant]
     Active Substance: ASPIRIN
     Dosage: 81 MILLIGRAM, QD

REACTIONS (11)
  - Influenza like illness [Unknown]
  - Nausea [Unknown]
  - Vomiting [Unknown]
  - Pericardial effusion [Recovered/Resolved]
  - Pericarditis [Unknown]
  - Pleural effusion [Unknown]
  - Lymphadenopathy [Unknown]
  - Hypotension [Unknown]
  - Hepatic enzyme increased [Unknown]
  - Immune-mediated adverse reaction [Unknown]
  - Asymptomatic bacteriuria [Unknown]
